FAERS Safety Report 9019530 (Version 2)
Quarter: 2013Q2

REPORT INFORMATION
  Report Type: Spontaneous
  Country: FR (occurrence: FR)
  Receive Date: 20130118
  Receipt Date: 20130409
  Transmission Date: 20140414
  Serious: Yes (Death)
  Sender: FDA-Public Use
  Company Number: FR-GILEAD-2012-0060865

PATIENT
  Sex: Male

DRUGS (3)
  1. VIREAD [Suspect]
     Indication: HEPATITIS B
     Dosage: UNK
     Dates: start: 201208
  2. VIREAD [Suspect]
     Dosage: UNK
  3. IXPRIM [Concomitant]
     Indication: PAIN

REACTIONS (2)
  - Death [Fatal]
  - Nausea [Unknown]
